FAERS Safety Report 8214344-9 (Version None)
Quarter: 2012Q1

REPORT INFORMATION
  Report Type: 
  Country: None (occurrence: None)
  Receive Date: 20120316
  Receipt Date: 20120308
  Transmission Date: 20120608
  Serious: Yes (Other)
  Sender: FDA-Public Use
  Company Number: JP-JNJFOC-20120305853

PATIENT
  Age: 13 Year
  Sex: Female

DRUGS (3)
  1. FENTANYL CITRATE [Suspect]
     Dosage: 20 AMPULES - 18 AMPULES
     Route: 042
  2. ANTI-CANCER DRUG [Suspect]
     Indication: NEOPLASM MALIGNANT
     Route: 065
  3. FENTANYL CITRATE [Suspect]
     Indication: PRODUCT USED FOR UNKNOWN INDICATION
     Dosage: 3 AMPULES
     Route: 042

REACTIONS (4)
  - GASTROINTESTINAL HYPOMOTILITY [None]
  - DECREASED APPETITE [None]
  - PAIN [None]
  - WEIGHT DECREASED [None]
